FAERS Safety Report 13025066 (Version 1)
Quarter: 2016Q4

REPORT INFORMATION
  Report Type: Spontaneous
  Country: MX (occurrence: MX)
  Receive Date: 20161213
  Receipt Date: 20161213
  Transmission Date: 20170207
  Serious: Yes (Death, Other)
  Sender: FDA-Public Use
  Company Number: MX-CELGENEUS-MEX-2016118752

PATIENT
  Sex: Male

DRUGS (1)
  1. VIDAZA [Suspect]
     Active Substance: AZACITIDINE
     Indication: ACUTE MYELOID LEUKAEMIA
     Dosage: 100MG
     Route: 058
     Dates: start: 20160626, end: 201607

REACTIONS (2)
  - Respiratory failure [Fatal]
  - Full blood count decreased [Unknown]
